FAERS Safety Report 12504480 (Version 1)
Quarter: 2016Q2

REPORT INFORMATION
  Report Type: Spontaneous
  Country: US (occurrence: US)
  Receive Date: 20160628
  Receipt Date: 20160628
  Transmission Date: 20160815
  Serious: No
  Sender: FDA-Public Use
  Company Number: US-ELI_LILLY_AND_COMPANY-US201606002944

PATIENT
  Sex: Male

DRUGS (1)
  1. AXIRON [Suspect]
     Active Substance: TESTOSTERONE
     Indication: BLOOD TESTOSTERONE DECREASED
     Dosage: ONE PUMP UNDER EACH ARM
     Route: 062

REACTIONS (4)
  - Libido disorder [Unknown]
  - Drug dose omission [Unknown]
  - Blood testosterone decreased [Unknown]
  - Incorrect dose administered [Unknown]
